FAERS Safety Report 20226443 (Version 3)
Quarter: 2023Q2

REPORT INFORMATION
  Report Type: Spontaneous
  Country: US (occurrence: US)
  Receive Date: 20211224
  Receipt Date: 20230526
  Transmission Date: 20230721
  Serious: Yes (Other)
  Sender: FDA-Public Use
  Company Number: US-drreddys-SPO/USA/21/0145102

PATIENT
  Sex: Female

DRUGS (3)
  1. LAMOTRIGINE [Suspect]
     Active Substance: LAMOTRIGINE
     Indication: Generalised tonic-clonic seizure
     Route: 048
  2. CARBAMAZEPINE [Suspect]
     Active Substance: CARBAMAZEPINE
     Indication: Generalised tonic-clonic seizure
  3. PHENYTOIN [Suspect]
     Active Substance: PHENYTOIN
     Indication: Generalised tonic-clonic seizure

REACTIONS (2)
  - Seizure [Unknown]
  - Drug ineffective [Unknown]
